FAERS Safety Report 5530150-8 (Version None)
Quarter: 2007Q4

REPORT INFORMATION
  Report Type: 
  Country: None (occurrence: None)
  Receive Date: 20071130
  Receipt Date: 20071119
  Transmission Date: 20080405
  Serious: Yes (Hospitalization, Other)
  Sender: FDA-Public Use
  Company Number: US-JNJFOC-20071107941

PATIENT
  Sex: Male
  Weight: 111.13 kg

DRUGS (8)
  1. DURAGESIC-100 [Suspect]
     Indication: PROCEDURAL PAIN
     Route: 062
  2. DURAGESIC-100 [Suspect]
     Indication: PAIN IN EXTREMITY
     Route: 062
  3. DURAGESIC-100 [Suspect]
     Indication: BACK PAIN
     Route: 062
  4. AMBIEN [Concomitant]
     Indication: SLEEP DISORDER
     Route: 048
  5. DIAZEPAM [Concomitant]
     Indication: MUSCLE SPASMS
     Route: 048
  6. NEURONTIN [Concomitant]
     Indication: NEURALGIA
     Route: 048
  7. PROZAC [Concomitant]
     Indication: DEPRESSION
     Route: 048
  8. CYMBALTA [Concomitant]
     Indication: DEPRESSION
     Route: 048

REACTIONS (11)
  - BACK PAIN [None]
  - CONDITION AGGRAVATED [None]
  - DEPRESSION [None]
  - FATIGUE [None]
  - MASTITIS [None]
  - OFF LABEL USE [None]
  - PAIN [None]
  - PAIN IN EXTREMITY [None]
  - PHARMACEUTICAL PRODUCT COMPLAINT [None]
  - WOUND INFECTION BACTERIAL [None]
  - WRONG TECHNIQUE IN DRUG USAGE PROCESS [None]
